FAERS Safety Report 5989658-3 (Version None)
Quarter: 2008Q4

REPORT INFORMATION
  Report Type: 
  Country: None (occurrence: None)
  Receive Date: 20081208
  Receipt Date: 20081028
  Transmission Date: 20090506
  Serious: Yes (Hospitalization)
  Sender: FDA-Public Use
  Company Number: 2008-186751-NL

PATIENT
  Age: 46 Year
  Sex: Female

DRUGS (1)
  1. MIRTAZAPINE [Suspect]

REACTIONS (4)
  - BODY TEMPERATURE INCREASED [None]
  - DISORIENTATION [None]
  - OVERDOSE [None]
  - SINUS TACHYCARDIA [None]
